FAERS Safety Report 17315550 (Version 1)
Quarter: 2020Q1

REPORT INFORMATION
  Report Type: Report from Study
  Country: US (occurrence: US)
  Receive Date: 20200124
  Receipt Date: 20200124
  Transmission Date: 20200409
  Serious: Yes (Hospitalization)
  Sender: FDA-Public Use
  Company Number: NVSC2020US013014

PATIENT
  Age: 5 Year
  Sex: Male

DRUGS (3)
  1. GSK1120212 [Suspect]
     Active Substance: TRAMETINIB
     Dosage: 0.45 MG, QD
     Route: 048
     Dates: start: 20200108
  2. GSK1120212 [Suspect]
     Active Substance: TRAMETINIB
     Indication: NEUROBLASTOMA
     Dosage: 0.5 MG, QD
     Route: 048
     Dates: start: 20191101, end: 20191123
  3. GSK1120212 [Suspect]
     Active Substance: TRAMETINIB
     Dosage: 0.5 MG, QD
     Route: 048
     Dates: start: 20191124, end: 20191212

REACTIONS (2)
  - Condition aggravated [Recovering/Resolving]
  - Lung opacity [Recovering/Resolving]

NARRATIVE: CASE EVENT DATE: 20191211
